FAERS Safety Report 13660160 (Version 1)
Quarter: 2017Q2

REPORT INFORMATION
  Report Type: Spontaneous
  Country: IT (occurrence: IT)
  Receive Date: 20170616
  Receipt Date: 20170616
  Transmission Date: 20170830
  Serious: Yes (Hospitalization, Other)
  Sender: FDA-Public Use
  Company Number: PHHY2017IT085895

PATIENT
  Age: 79 Year
  Sex: Male

DRUGS (1)
  1. PAZOPANIB [Suspect]
     Active Substance: PAZOPANIB
     Indication: RENAL CANCER METASTATIC
     Dosage: 800 MG, QD
     Route: 048
     Dates: start: 20170517, end: 20170531

REACTIONS (2)
  - Left ventricular failure [Recovering/Resolving]
  - Left ventricular hypertrophy [Unknown]

NARRATIVE: CASE EVENT DATE: 20170531
